FAERS Safety Report 13792512 (Version 1)
Quarter: 2017Q3

REPORT INFORMATION
  Report Type: Spontaneous
  Country: JP (occurrence: JP)
  Receive Date: 20170726
  Receipt Date: 20170726
  Transmission Date: 20171127
  Serious: Yes (Death, Other)
  Sender: FDA-Public Use
  Company Number: JP-PFIZER INC-2017296174

PATIENT
  Age: 84 Year
  Sex: Male

DRUGS (1)
  1. BOSULIF [Suspect]
     Active Substance: BOSUTINIB MONOHYDRATE
     Indication: CHRONIC MYELOID LEUKAEMIA
     Dosage: 200 MG, DAILY
     Dates: start: 201703

REACTIONS (3)
  - Pneumonia aspiration [Unknown]
  - Pneumonia [Fatal]
  - Oedema [Recovered/Resolved]

NARRATIVE: CASE EVENT DATE: 201706
